FAERS Safety Report 15421495 (Version 2)
Quarter: 2018Q3

REPORT INFORMATION
  Report Type: Report from Study
  Country: US (occurrence: US)
  Receive Date: 20180924
  Receipt Date: 20180926
  Transmission Date: 20181010
  Serious: Yes (Hospitalization)
  Sender: FDA-Public Use
  Company Number: US-ACTELION-A-US2016-139426

PATIENT
  Age: 40 Year
  Sex: Female
  Weight: 59.86 kg

DRUGS (6)
  1. RIOCIGUAT. [Concomitant]
     Active Substance: RIOCIGUAT
  2. VELETRI [Suspect]
     Active Substance: EPOPROSTENOL
     Indication: PULMONARY HYPERTENSION
     Dosage: 30 NG/KG, PER MIN
     Route: 042
     Dates: start: 20140716
  3. VELETRI [Suspect]
     Active Substance: EPOPROSTENOL
     Dosage: 35 NG/KG, PER MIN
     Route: 042
  4. ADEMPAS [Concomitant]
     Active Substance: RIOCIGUAT
  5. VELETRI [Suspect]
     Active Substance: EPOPROSTENOL
     Dosage: 36.5 NG/KG, PER MIN
     Route: 042
  6. WARFARIN [Concomitant]
     Active Substance: WARFARIN

REACTIONS (12)
  - Ear infection [Recovered/Resolved]
  - Oedema peripheral [Unknown]
  - Chest pain [Unknown]
  - Pain in jaw [Unknown]
  - Headache [Recovering/Resolving]
  - Dyspnoea exertional [Unknown]
  - Ear pain [Recovered/Resolved]
  - Dyspnoea [Unknown]
  - Catheter site haemorrhage [Unknown]
  - Hypoacusis [Recovered/Resolved]
  - Device related infection [Unknown]
  - Device breakage [Unknown]
